FAERS Safety Report 19525037 (Version 1)
Quarter: 2021Q3

REPORT INFORMATION
  Report Type: Spontaneous
  Country: US (occurrence: US)
  Receive Date: 20210712
  Receipt Date: 20210712
  Transmission Date: 20211014
  Serious: No
  Sender: FDA-Public Use
  Company Number: None

PATIENT
  Age: 68 Year
  Sex: Male

DRUGS (2)
  1. CYCLOSPORINE MODIFIED [Suspect]
     Active Substance: CYCLOSPORINE
     Route: 048
     Dates: start: 202005
  2. MODERNA COVID?19 VACCINE [Suspect]
     Active Substance: CX-024414

REACTIONS (1)
  - Antibody test negative [None]

NARRATIVE: CASE EVENT DATE: 20210712
